FAERS Safety Report 5685778-1 (Version None)
Quarter: 2008Q1

REPORT INFORMATION
  Report Type: 
  Country: None (occurrence: None)
  Receive Date: 20080328
  Receipt Date: 20071210
  Transmission Date: 20080703
  Serious: Yes (Other)
  Sender: FDA-Public Use
  Company Number: AT-BAYER-200718386GPV

PATIENT
  Sex: Female

DRUGS (1)
  1. YASMIN (ETHINYLESTRADIOL/ DROSPIRENON) [Suspect]
     Indication: DRUG USE FOR UNKNOWN INDICATION
     Route: 048

REACTIONS (2)
  - SUDDEN HEARING LOSS [None]
  - TINNITUS [None]
